FAERS Safety Report 11966146 (Version 1)
Quarter: 2016Q1

REPORT INFORMATION
  Report Type: Spontaneous
  Country: US (occurrence: None)
  Receive Date: 20160126
  Receipt Date: 20160126
  Transmission Date: 20160526
  Serious: Yes (Disabling)
  Sender: FDA-Public Use
  Company Number: None

PATIENT
  Age: 61 Year
  Sex: Female
  Weight: 62.6 kg

DRUGS (6)
  1. CIPRO [Suspect]
     Active Substance: CIPROFLOXACIN HYDROCHLORIDE
     Indication: URINARY TRACT INFECTION
     Dosage: 1 PILL PER DAY FOR 5 DAYS TAKEN BY MOUTH
     Route: 048
     Dates: start: 20150925, end: 20150928
  2. VITAMIN D [Concomitant]
     Active Substance: CHOLECALCIFEROL
  3. VITAMIN C [Concomitant]
     Active Substance: ASCORBIC ACID
  4. COENZYME Q10 [Concomitant]
     Active Substance: UBIDECARENONE
  5. FISH OIL [Concomitant]
     Active Substance: FISH OIL
  6. VITAMIN B [Concomitant]
     Active Substance: VITAMIN B

REACTIONS (5)
  - Carpal tunnel syndrome [None]
  - Tinnitus [None]
  - Amnesia [None]
  - Toothache [None]
  - Tendon rupture [None]

NARRATIVE: CASE EVENT DATE: 20150925
